FAERS Safety Report 10982324 (Version 1)
Quarter: 2015Q2

REPORT INFORMATION
  Report Type: Spontaneous
  Country: US (occurrence: US)
  Receive Date: 20150403
  Receipt Date: 20150403
  Transmission Date: 20150821
  Serious: No
  Sender: FDA-Public Use
  Company Number: US-PFIZER INC-2015114209

PATIENT
  Sex: Female

DRUGS (6)
  1. MULTIPLE VITAMINS [Concomitant]
     Active Substance: VITAMINS
     Dosage: UNK
  2. ALTACE [Suspect]
     Active Substance: RAMIPRIL
     Indication: HYPERTENSION
     Dosage: 2.5 MG, UNK
     Route: 048
  3. ALTACE [Suspect]
     Active Substance: RAMIPRIL
     Dosage: 10 MG, UNK
     Route: 048
  4. BAYASPIRIN [Concomitant]
     Active Substance: ASPIRIN
     Dosage: UNK
  5. ALTACE [Suspect]
     Active Substance: RAMIPRIL
     Dosage: 5 MG, 2X/DAY
     Route: 048
  6. TOPROL XL [Suspect]
     Active Substance: METOPROLOL SUCCINATE
     Dosage: 0.5 DF, UNK
     Route: 048

REACTIONS (6)
  - Blood pressure increased [Unknown]
  - Drug ineffective [Unknown]
  - Intentional product misuse [Unknown]
  - Headache [Unknown]
  - Feeling abnormal [Unknown]
  - Nausea [Unknown]
